FAERS Safety Report 25841766 (Version 1)
Quarter: 2025Q3

REPORT INFORMATION
  Report Type: Spontaneous
  Country: EU (occurrence: EU)
  Receive Date: 20250924
  Receipt Date: 20250924
  Transmission Date: 20251020
  Serious: Yes (Death, Hospitalization)
  Sender: IMMUNOCORE
  Company Number: EU-Medison-001599

PATIENT

DRUGS (1)
  1. TEBENTAFUSP [Suspect]
     Active Substance: TEBENTAFUSP
     Indication: Uveal melanoma
     Dates: start: 20250728, end: 20250728

REACTIONS (11)
  - Cardio-respiratory arrest [Fatal]
  - Cytokine release syndrome [Fatal]
  - Altered state of consciousness [Unknown]
  - General physical health deterioration [Unknown]
  - Agitation [Unknown]
  - Oxygen saturation decreased [Unknown]
  - Bradypnoea [Unknown]
  - Hypoglycaemia [Unknown]
  - Body temperature increased [Unknown]
  - Blood pressure decreased [Unknown]
  - Chills [Unknown]

NARRATIVE: CASE EVENT DATE: 20250728
